FAERS Safety Report 18212678 (Version 3)
Quarter: 2020Q3

REPORT INFORMATION
  Report Type: Spontaneous
  Country: JP (occurrence: JP)
  Receive Date: 20200831
  Receipt Date: 20200914
  Transmission Date: 20201103
  Serious: Yes (Death)
  Sender: FDA-Public Use
  Company Number: JP-PFIZER INC-2020334791

PATIENT
  Age: 61 Year
  Sex: Female
  Weight: 36.2 kg

DRUGS (9)
  1. PACLITAXEL. [Suspect]
     Active Substance: PACLITAXEL
     Dosage: 210 MG, CYCLIC (SECOND COURSE)/SAME REGIMEN
     Route: 042
     Dates: start: 19990712
  2. RANITIDINE. [Concomitant]
     Active Substance: RANITIDINE
     Indication: BREAST CANCER
     Dosage: 50 MG
     Route: 042
     Dates: start: 19990621
  3. DIPHENHYDRAMINE HYDROCHLORIDE. [Concomitant]
     Active Substance: DIPHENHYDRAMINE HYDROCHLORIDE
     Indication: BREAST CANCER
     Dosage: 50 MG (ADMINISTERED 30 MINUTES PRIOR)
     Route: 048
     Dates: start: 19990621
  4. PACLITAXEL. [Suspect]
     Active Substance: PACLITAXEL
     Dosage: 210 MG, CYCLIC (FIRST COURSE)
     Route: 042
     Dates: start: 19990621
  5. DIPHENHYDRAMINE HYDROCHLORIDE. [Concomitant]
     Active Substance: DIPHENHYDRAMINE HYDROCHLORIDE
     Indication: MALIGNANT PLEURAL EFFUSION
  6. DEXAMETHASONE. [Concomitant]
     Active Substance: DEXAMETHASONE
     Indication: BREAST CANCER
     Dosage: 20 MG (12 AND 6 HOURS PRIOR)
     Route: 042
     Dates: start: 19990621
  7. DEXAMETHASONE. [Concomitant]
     Active Substance: DEXAMETHASONE
     Indication: MALIGNANT PLEURAL EFFUSION
     Dosage: 20 MG, DAILY
     Dates: start: 199907
  8. PACLITAXEL. [Suspect]
     Active Substance: PACLITAXEL
     Indication: BREAST CANCER
     Dosage: 175 MG/M2, CYCLIC (THREE COURSES OF CHEMOTHERAPY USING PACLITAXEL AT A DOSE OF 175MG/M^2 A MONTH)
     Route: 042
     Dates: start: 1999
  9. RANITIDINE. [Concomitant]
     Active Substance: RANITIDINE
     Indication: MALIGNANT PLEURAL EFFUSION

REACTIONS (1)
  - Pneumonitis [Fatal]

NARRATIVE: CASE EVENT DATE: 1999
